FAERS Safety Report 9900366 (Version 3)
Quarter: 2014Q2

REPORT INFORMATION
  Report Type: Spontaneous
  Country: US (occurrence: US)
  Receive Date: 20140216
  Receipt Date: 20140515
  Transmission Date: 20141212
  Serious: Yes (Other)
  Sender: FDA-Public Use
  Company Number: US-PFIZER INC-2014039580

PATIENT
  Age: 67 Year
  Sex: Female

DRUGS (9)
  1. REVATIO [Suspect]
     Indication: PULMONARY HYPERTENSION
     Dosage: 20 MG, 3X/DAY
     Route: 048
     Dates: start: 20120329
  2. ALBUTEROL [Concomitant]
     Dosage: UNK, AS NEEDED
  3. ALENDRONATE [Concomitant]
     Dosage: 70 MG, WEEKLY
  4. LOVASTATIN [Concomitant]
     Dosage: 40 MG, DAILY
  5. PROTONIX [Concomitant]
     Dosage: 40 MG, UNK
  6. MIRAPEX [Concomitant]
     Dosage: 0.75 MG (0.5MG - 1.5 TAB), UNK
  7. SERTRALINE [Concomitant]
     Dosage: 100 MG, UNK
  8. CHANTIX [Concomitant]
     Dosage: UNK
  9. NEXIUM [Concomitant]
     Dosage: UNK

REACTIONS (1)
  - Thoracic vertebral fracture [Recovering/Resolving]
